FAERS Safety Report 8720642 (Version 2)
Quarter: 2012Q4

REPORT INFORMATION
  Report Type: 
  Country: FR (occurrence: FR)
  Receive Date: 20120813
  Receipt Date: 20121206
  Transmission Date: 20130627
  Serious: Yes (Other)
  Sender: FDA-Public Use
  Company Number: FR-ELI_LILLY_AND_COMPANY-FR201208000920

PATIENT
  Age: 70 Year
  Sex: Male

DRUGS (11)
  1. ALIMTA [Suspect]
     Indication: LUNG ADENOCARCINOMA
     Dosage: UNK, unknown
     Route: 065
     Dates: start: 20120308
  2. CARBOPLATIN [Concomitant]
     Indication: LUNG ADENOCARCINOMA
     Dosage: UNK, unknown
     Route: 065
     Dates: start: 20120308
  3. INNOHEP [Concomitant]
     Dosage: UNK
     Dates: start: 20111215
  4. JANUMET [Concomitant]
     Dosage: UNK, unknown
     Route: 065
  5. DEROXAT [Concomitant]
     Dosage: UNK, unknown
     Route: 065
  6. TAHOR [Concomitant]
     Dosage: UNK, unknown
     Route: 065
  7. DIGOXINE [Concomitant]
     Dosage: UNK, unknown
  8. MECIR [Concomitant]
     Dosage: UNK, unknown
     Route: 065
  9. PERMIXON [Concomitant]
     Dosage: UNK, unknown
     Route: 065
  10. PREVISCAN [Concomitant]
     Dosage: UNK, unknown
     Route: 065
     Dates: end: 201112
  11. FLECAINE [Concomitant]

REACTIONS (3)
  - Malignant neoplasm progression [Unknown]
  - Purpura [Recovered/Resolved]
  - General physical health deterioration [Unknown]
